FAERS Safety Report 6845083-4 (Version None)
Quarter: 2010Q3

REPORT INFORMATION
  Report Type: 
  Country: None (occurrence: None)
  Receive Date: 20100715
  Receipt Date: 20070810
  Transmission Date: 20110219
  Serious: No
  Sender: FDA-Public Use
  Company Number: US-PFIZER INC-2007067743

PATIENT
  Sex: Female
  Weight: 56.363 kg

DRUGS (11)
  1. CHANTIX [Suspect]
     Indication: SMOKING CESSATION THERAPY
     Route: 048
     Dates: start: 20070731
  2. LISINOPRIL [Concomitant]
  3. ATORVASTATIN [Concomitant]
  4. COREG [Concomitant]
  5. SPIRONOLACTONE [Concomitant]
  6. PAXIL [Concomitant]
  7. SYNTHROID [Concomitant]
  8. ACTONEL [Concomitant]
  9. AMIODARONE HCL [Concomitant]
  10. ACETYLSALICYLIC ACID [Concomitant]
  11. ATIVAN [Concomitant]

REACTIONS (3)
  - CONSTIPATION [None]
  - DRUG INEFFECTIVE [None]
  - FATIGUE [None]
